FAERS Safety Report 10599975 (Version 1)
Quarter: 2014Q4

REPORT INFORMATION
  Report Type: Spontaneous
  Country: US (occurrence: US)
  Receive Date: 20141121
  Receipt Date: 20141121
  Transmission Date: 20150529
  Serious: No
  Sender: FDA-Public Use
  Company Number: US-SA-2014SA129395

PATIENT
  Age: 68 Year
  Sex: Female

DRUGS (1)
  1. RENAGEL [Suspect]
     Active Substance: SEVELAMER HYDROCHLORIDE
     Indication: HYPERPHOSPHATAEMIA
     Dosage: RENAGEL 5 TABLETS 3 TIMES DAILY WITH MEALS.
     Route: 048
     Dates: start: 20140327

REACTIONS (4)
  - Weight decreased [Not Recovered/Not Resolved]
  - Hyperphosphataemia [Unknown]
  - Decreased appetite [Not Recovered/Not Resolved]
  - Blood albumin decreased [Not Recovered/Not Resolved]

NARRATIVE: CASE EVENT DATE: 2014
